FAERS Safety Report 9972273 (Version 2)
Quarter: 2014Q1

REPORT INFORMATION
  Report Type: Report from Study
  Country: US (occurrence: US)
  Receive Date: 20140306
  Receipt Date: 20140306
  Transmission Date: 20141002
  Serious: No
  Sender: FDA-Public Use
  Company Number: US-ABBVIE-12P-163-1022374-00

PATIENT
  Age: 62 Year
  Sex: Female

DRUGS (5)
  1. HUMIRA [Suspect]
     Indication: COLITIS ULCERATIVE
     Dates: start: 20121115
  2. HUMIRA [Suspect]
     Dates: start: 20121129
  3. HUMIRA [Suspect]
  4. ASACOL HD [Concomitant]
     Indication: COLITIS ULCERATIVE
  5. XANAX [Concomitant]
     Indication: SLEEP DISORDER THERAPY
     Dosage: HOUR OF SLEEP

REACTIONS (4)
  - Pyrexia [Not Recovered/Not Resolved]
  - Arthralgia [Not Recovered/Not Resolved]
  - Alopecia [Unknown]
  - Insomnia [Recovered/Resolved with Sequelae]
